FAERS Safety Report 8547265-2 (Version None)
Quarter: 2012Q3

REPORT INFORMATION
  Report Type: 
  Country: None (occurrence: None)
  Receive Date: 20120727
  Receipt Date: 20120712
  Transmission Date: 20120928
  Serious: Yes (Other)
  Sender: FDA-Public Use
  Company Number: CHPA2012US015585

PATIENT
  Age: 64 Year
  Sex: Female

DRUGS (1)
  1. ALUMINUM HYDROXIDE AND MAGNESIUM TRISILICATE [Suspect]
     Indication: ABDOMINAL DISCOMFORT
     Dosage: UNK, PRN
     Route: 048

REACTIONS (7)
  - LICHEN PLANUS [None]
  - DRY MOUTH [None]
  - FLATULENCE [None]
  - SJOGREN'S SYNDROME [None]
  - PRECANCEROUS MUCOSAL LESION [None]
  - APTYALISM [None]
  - APHAGIA [None]
